FAERS Safety Report 6228286-1 (Version None)
Quarter: 2009Q2

REPORT INFORMATION
  Report Type: 
  Country: None (occurrence: None)
  Receive Date: 20090612
  Receipt Date: 20090605
  Transmission Date: 20091009
  Serious: Yes (Hospitalization)
  Sender: FDA-Public Use
  Company Number: PHHO2009US07111

PATIENT
  Sex: Female

DRUGS (4)
  1. BLINDED ACTIVE CONTROL A.C. [Suspect]
     Indication: DERMATITIS ATOPIC
     Dosage: DOUBLE BLIND
     Route: 061
  2. BLINDED ACTIVE CONTROL A.C. COMP-ACC+ [Suspect]
     Indication: DERMATITIS ATOPIC
     Dosage: DOUBLE BLIND
     Route: 061
  3. ELIDEL [Suspect]
     Indication: DERMATITIS ATOPIC
     Dosage: DOUBLE BLIND
     Route: 061
  4. BLINDED NO TREATMENT RECEIVED NOMED [Suspect]
     Indication: DERMATITIS ATOPIC
     Dosage: DOUBLE BLIND
     Route: 061

REACTIONS (1)
  - PNEUMONIA [None]
